FAERS Safety Report 4485401-8 (Version None)
Quarter: 2004Q4

REPORT INFORMATION
  Report Type: 
  Country: None (occurrence: None)
  Receive Date: 20041025
  Receipt Date: 20041025
  Transmission Date: 20050328
  Serious: Yes (Disabling)
  Sender: FDA-Public Use
  Company Number: None

PATIENT
  Sex: Male
  Weight: 83.9154 kg

DRUGS (2)
  1. LUPRON DEPOT [Suspect]
     Indication: PROSTATE CANCER
     Dosage: 30 MG 4 MONTH INTRAMUSCULAR
     Route: 030
     Dates: start: 20040324, end: 20041024
  2. EXTERNAL IMRT RADIOTHERAPY [Concomitant]

REACTIONS (5)
  - BONE DENSITY DECREASED [None]
  - DIFFICULTY IN WALKING [None]
  - INTERVERTEBRAL DISC DEGENERATION [None]
  - PAIN [None]
  - SPINAL COLUMN STENOSIS [None]
